FAERS Safety Report 6835468-4 (Version None)
Quarter: 2010Q3

REPORT INFORMATION
  Report Type: 
  Country: None (occurrence: None)
  Receive Date: 20100713
  Receipt Date: 20100628
  Transmission Date: 20110219
  Serious: Yes (Hospitalization, Other)
  Sender: FDA-Public Use
  Company Number: PHHY2010JP14051

PATIENT
  Sex: Female

DRUGS (8)
  1. TASIGNA [Suspect]
     Indication: CHRONIC MYELOID LEUKAEMIA
     Dosage: 400MG DAILY
     Route: 048
     Dates: start: 20100115, end: 20100302
  2. PREDONINE [Suspect]
     Indication: LIVER DISORDER
  3. PREDONINE [Suspect]
     Indication: RASH
  4. STARSIS [Concomitant]
     Dosage: 3DF
     Dates: start: 20100129
  5. ALLOPURINOL [Concomitant]
     Dosage: 100MG
     Route: 048
  6. CELESTAMINE TAB [Concomitant]
     Dosage: 1DF
     Route: 048
  7. LASIX [Concomitant]
     Dosage: 20MG
     Route: 048
  8. MICARDIS [Concomitant]
     Dosage: 40 MG
     Route: 048

REACTIONS (8)
  - BLOOD GLUCOSE INCREASED [None]
  - CEREBRAL INFARCTION [None]
  - DEHYDRATION [None]
  - HYPOAESTHESIA [None]
  - LIVER DISORDER [None]
  - MUSCULAR WEAKNESS [None]
  - NAUSEA [None]
  - URTICARIA [None]
